FAERS Safety Report 17122716 (Version 1)
Quarter: 2019Q4

REPORT INFORMATION
  Report Type: Spontaneous
  Country: US (occurrence: US)
  Receive Date: 20191114
  Receipt Date: 20191114
  Transmission Date: 20200122
  Serious: Yes (Hospitalization)
  Sender: FDA-Public Use
  Company Number: None

PATIENT
  Age: 65 Year
  Sex: Female

DRUGS (13)
  1. TRAMADOL. [Concomitant]
     Active Substance: TRAMADOL
  2. ERYTHROMHYCIN OIN [Concomitant]
  3. LISINOPRIL. [Concomitant]
     Active Substance: LISINOPRIL
  4. HUMIRA [Concomitant]
     Active Substance: ADALIMUMAB
  5. DOXYCYCL HYC [Concomitant]
  6. IBUPROFEN. [Concomitant]
     Active Substance: IBUPROFEN
  7. DORZOL/TIMOL [Concomitant]
  8. MUCINEX 600 MG ER [Concomitant]
  9. XELJANZ [Suspect]
     Active Substance: TOFACITINIB CITRATE
     Indication: RHEUMATOID ARTHRITIS
     Route: 048
     Dates: start: 20180727, end: 20191113
  10. POLYMYXIN B/SOL TRIMETH [Concomitant]
  11. SMZ/TMP DS [Concomitant]
     Active Substance: SULFAMETHOXAZOLE\TRIMETHOPRIM
  12. PREDNISONE. [Concomitant]
     Active Substance: PREDNISONE
  13. GABAPENTIN. [Concomitant]
     Active Substance: GABAPENTIN

REACTIONS (1)
  - Infection [None]

NARRATIVE: CASE EVENT DATE: 20191113
